FAERS Safety Report 4314226-9 (Version None)
Quarter: 2004Q1

REPORT INFORMATION
  Report Type: 
  Country: None (occurrence: None)
  Receive Date: 20040309
  Receipt Date: 20040309
  Transmission Date: 20041129
  Serious: Yes (Hospitalization)
  Sender: FDA-Public Use
  Company Number: None

PATIENT
  Age: 48 Year
  Sex: Female
  Weight: 69.5 kg

DRUGS (3)
  1. STELAZINE [Suspect]
     Indication: BIPOLAR DISORDER
     Dosage: 10 MG DAILY ORAL
     Route: 048
  2. LITHIUM [Concomitant]
  3. ATIVAN [Concomitant]

REACTIONS (1)
  - PLATELET COUNT DECREASED [None]
